FAERS Safety Report 8557691-3 (Version None)
Quarter: 2012Q3

REPORT INFORMATION
  Report Type: 
  Country: None (occurrence: None)
  Receive Date: 20120801
  Receipt Date: 20070519
  Transmission Date: 20120928
  Serious: Yes (Other)
  Sender: FDA-Public Use
  Company Number: CO-PFIZER INC-2012182859

PATIENT
  Age: 58 Year
  Sex: Female

DRUGS (4)
  1. PROPRANOLOL HYDROCHLORIDE [Concomitant]
     Dosage: 40 MG EVERY 12 HOURS
  2. QUINAPRIL AND HYDROCHLOROTHIAZIDE [Suspect]
     Indication: HYPERTENSION
     Dosage: 20+12.5 MG EVERY 24 HOURS
  3. ASPIRIN [Concomitant]
     Dosage: 100 MG EVERY 24 HOURS
  4. LIPITOR [Suspect]
     Indication: DYSLIPIDAEMIA
     Dosage: 10 MG EVERY 24 HOURS

REACTIONS (3)
  - PALPITATIONS [None]
  - CARDIAC FAILURE [None]
  - HYPERTENSIVE EMERGENCY [None]
